FAERS Safety Report 6145955-2 (Version None)
Quarter: 2009Q2

REPORT INFORMATION
  Report Type: 
  Country: None (occurrence: None)
  Receive Date: 20090406
  Receipt Date: 20090406
  Transmission Date: 20091009
  Serious: Yes (Hospitalization)
  Sender: FDA-Public Use
  Company Number: None

PATIENT
  Age: 25 Year
  Sex: Male
  Weight: 81.6475 kg

DRUGS (2)
  1. SUPHEDRINE P E SINUS + ALLERGY  14MG EQUATE [Suspect]
     Indication: INFLUENZA
     Dosage: 1 TABLET 4 HRS. MOUTH
     Route: 048
     Dates: start: 20090219
  2. SUPHEDRINE P E SINUS + ALLERGY  14MG EQUATE [Suspect]
     Indication: INFLUENZA
     Dosage: 1 TABLET 4 HRS. MOUTH
     Route: 048
     Dates: start: 20090220

REACTIONS (1)
  - INSOMNIA [None]
